FAERS Safety Report 19363499 (Version 2)
Quarter: 2022Q2

REPORT INFORMATION
  Report Type: Spontaneous
  Country: CH (occurrence: CH)
  Receive Date: 20210602
  Receipt Date: 20220627
  Transmission Date: 20220720
  Serious: Yes (Hospitalization)
  Sender: FDA-Public Use
  Company Number: None

PATIENT
  Age: 25 Year
  Sex: Female

DRUGS (33)
  1. MEROPENEM [Suspect]
     Active Substance: MEROPENEM
     Dosage: 2 G, 3X/DAY(1X/8H)
     Route: 042
     Dates: start: 20210404, end: 20210615
  2. LORAZEPAM [Suspect]
     Active Substance: LORAZEPAM
     Dosage: 1 MG, AS NEEDED [(3X/DAY (MAXIMUM)]
     Route: 048
     Dates: start: 20210503
  3. LEVETIRACETAM [Suspect]
     Active Substance: LEVETIRACETAM
     Dosage: 250 TO 500MG, ONCE PER DAY
     Route: 042
     Dates: start: 20210323, end: 20210323
  4. LEVETIRACETAM [Suspect]
     Active Substance: LEVETIRACETAM
     Dosage: 250 TO 500MG, ONCE PER DAY
     Route: 042
     Dates: start: 20210325, end: 20210326
  5. LEVETIRACETAM [Suspect]
     Active Substance: LEVETIRACETAM
     Dosage: UNK (VIA NASOGASTRIC TUBE)
     Route: 050
     Dates: start: 20210326, end: 20210429
  6. LEVETIRACETAM [Suspect]
     Active Substance: LEVETIRACETAM
     Dosage: 250 TO 500MG, ONCE PER DAY
     Route: 042
     Dates: start: 20210403, end: 20210403
  7. LEVETIRACETAM [Suspect]
     Active Substance: LEVETIRACETAM
     Dosage: 1000 MG, 2X/DAY
     Route: 050
     Dates: start: 20210506, end: 20210510
  8. LEVETIRACETAM [Suspect]
     Active Substance: LEVETIRACETAM
     Dosage: 750 MG, 2X/DAY
     Route: 048
     Dates: start: 20210510, end: 20210514
  9. LEVETIRACETAM [Suspect]
     Active Substance: LEVETIRACETAM
     Dosage: 500 MG
     Route: 048
     Dates: start: 20210514, end: 20210607
  10. LEVETIRACETAM [Suspect]
     Active Substance: LEVETIRACETAM
     Dosage: 250 MG
     Route: 048
     Dates: start: 20210607, end: 20210617
  11. NOVALGIN (METAMIZOLE SODIUM) [Suspect]
     Active Substance: METAMIZOLE SODIUM
     Indication: Pain
     Dosage: 500 MG, AS NEEDED [(3X/DAY (MAXIMUM) BY NASOGASTRIC TUBE]
     Route: 050
     Dates: start: 20210325, end: 20210326
  12. NOVALGIN (METAMIZOLE SODIUM) [Suspect]
     Active Substance: METAMIZOLE SODIUM
     Dosage: 500 MG, AS NEEDED [(3X/DAY (MAXIMUM) BY NASOGASTRIC TUBE]
     Route: 050
     Dates: start: 20210403, end: 20210403
  13. NOVALGIN (METAMIZOLE SODIUM) [Suspect]
     Active Substance: METAMIZOLE SODIUM
     Dosage: 500 MG, AS NEEDED[(3X/DAY (MAXIMUM) BY NASOGASTRIC TUBE]
     Route: 050
     Dates: start: 20210424, end: 20210424
  14. NOVALGIN (METAMIZOLE SODIUM) [Suspect]
     Active Substance: METAMIZOLE SODIUM
     Dosage: 500 MG, AS NEEDED [(3X/DAY (MAXIMUM) BY NASOGASTRIC TUBE]
     Route: 050
     Dates: start: 20210503, end: 20210505
  15. AMIKACIN [Suspect]
     Active Substance: AMIKACIN
     Dosage: UNK, (SINGLE DOSE)
     Dates: start: 20210404, end: 20210404
  16. INDERAL [Suspect]
     Active Substance: PROPRANOLOL HYDROCHLORIDE
     Dosage: 20 MG, EVERY 2 DAYS (ALSO REPORTED AS TWICE A DAY BY NASOGASTIC TUBE)
     Route: 050
     Dates: start: 20210423
  17. INDERAL [Suspect]
     Active Substance: PROPRANOLOL HYDROCHLORIDE
     Dosage: 20 MG
     Route: 050
     Dates: start: 20210505, end: 20210531
  18. INDERAL [Suspect]
     Active Substance: PROPRANOLOL HYDROCHLORIDE
     Dosage: 10 MG
     Route: 050
     Dates: start: 20210531, end: 20210622
  19. CEFTRIAXONE [Suspect]
     Active Substance: CEFTRIAXONE
     Dosage: UNK
     Dates: start: 20210406, end: 20210416
  20. LACOSAMIDE [Suspect]
     Active Substance: LACOSAMIDE
     Dosage: 100 MG, EVERY 2 DAYS (ALSO REPORTED AS TWICE A DAY)
     Dates: start: 20210421, end: 20210505
  21. ENOXAPARIN SODIUM [Concomitant]
     Active Substance: ENOXAPARIN SODIUM
     Dosage: UNK
     Route: 058
     Dates: start: 20210328
  22. LIORESAL [Concomitant]
     Active Substance: BACLOFEN
     Dosage: UNK (VIA NASOGASTRIC TUBE)
     Route: 050
     Dates: start: 20210426
  23. CLONIDINE HYDROCHLORIDE [Concomitant]
     Active Substance: CLONIDINE HYDROCHLORIDE
     Dosage: UNK (VIA NASOGASTRIC TUBE)
     Route: 050
     Dates: start: 20210426
  24. NYSTATIN [Concomitant]
     Active Substance: NYSTATIN
     Dosage: UNK
     Route: 048
     Dates: start: 20210421
  25. POLYETHYLENE GLYCOL 3350\POTASSIUM CHLORIDE\SODIUM BICARBONATE\SODIUM [Concomitant]
     Active Substance: POLYETHYLENE GLYCOL 3350\POTASSIUM CHLORIDE\SODIUM BICARBONATE\SODIUM CHLORIDE
     Dosage: AS NEEDED
     Route: 048
  26. DAFALGAN [Concomitant]
     Active Substance: ACETAMINOPHEN
     Indication: Pain
     Dosage: AS NEEDED
     Dates: start: 20210326
  27. AMLODIPINE [Concomitant]
     Active Substance: AMLODIPINE BESYLATE
     Dosage: UNK, SINGLE, (NASOGASTRIC TUBE IN SINGLE DOSE)
     Route: 050
     Dates: start: 20210421, end: 20210421
  28. LANSOPRAZOLE [Concomitant]
     Active Substance: LANSOPRAZOLE
     Dosage: UNK (NASOGASTRIC TUBE)
     Route: 050
     Dates: start: 20210503, end: 20210504
  29. NIMODIPINE [Concomitant]
     Active Substance: NIMODIPINE
     Dosage: UNK
     Dates: start: 20210325, end: 20210423
  30. TRAMADOL [Concomitant]
     Active Substance: TRAMADOL
     Dosage: UNK, SINGLE (NASOGASTRIC TUBE IN SINGLE DOSE)
     Route: 050
     Dates: start: 20210504, end: 20210504
  31. VANCOMYCIN HYDROCHLORIDE [Concomitant]
     Active Substance: VANCOMYCIN HYDROCHLORIDE
     Dosage: UNK
     Dates: start: 20210403, end: 20210406
  32. VANCOMYCIN HYDROCHLORIDE [Concomitant]
     Active Substance: VANCOMYCIN HYDROCHLORIDE
     Dosage: UNK
     Dates: start: 20210416, end: 20210420
  33. MOXIFLOXACIN [Concomitant]
     Active Substance: MOXIFLOXACIN
     Dosage: 400 MG, 1X/DAY
     Route: 048
     Dates: start: 20210615, end: 20210805

REACTIONS (2)
  - Agranulocytosis [Recovered/Resolved]
  - Pyrexia [Not Recovered/Not Resolved]

NARRATIVE: CASE EVENT DATE: 20210505
